FAERS Safety Report 8891794 (Version 1)
Quarter: 2012Q4

REPORT INFORMATION
  Report Type: 
  Country: US (occurrence: US)
  Receive Date: 20121107
  Receipt Date: 20121107
  Transmission Date: 20130627
  Serious: No
  Sender: FDA-Public Use
  Company Number: US-AMGEN-USASP2011058038

PATIENT
  Age: 44 Year
  Weight: 88.89 kg

DRUGS (9)
  1. ENBREL [Suspect]
     Indication: PRODUCT USED FOR UNKNOWN INDICATION
     Dosage: 25 mg, UNK
     Route: 058
  2. AMBIEN [Concomitant]
     Dosage: 5 mg, UNK
  3. TRAZODONE [Concomitant]
     Dosage: 50 mg, UNK
  4. METFORMIN [Concomitant]
     Dosage: 500 mg, UNK
  5. OMEPRAZOLE [Concomitant]
     Dosage: 10 mg, UNK
  6. PRILOSEC [Concomitant]
     Dosage: 10 mg, UNK
  7. ZESTRIL [Concomitant]
     Dosage: 2.5 mg, UNK
  8. SEROQUEL [Concomitant]
     Dosage: 100 mg, UNK
  9. CLONAZEPAM [Concomitant]
     Dosage: 1 mg, UNK

REACTIONS (1)
  - Red blood cell count decreased [Unknown]
